FAERS Safety Report 8948858 (Version 2)
Quarter: 2013Q1

REPORT INFORMATION
  Report Type: Spontaneous
  Country: US (occurrence: US)
  Receive Date: 20121206
  Receipt Date: 20130204
  Transmission Date: 20140127
  Serious: No
  Sender: FDA-Public Use
  Company Number: US-BIOGENIDEC-2012BI056671

PATIENT
  Age: 67 Year
  Sex: Female

DRUGS (1)
  1. TYSABRI [Suspect]
     Indication: MULTIPLE SCLEROSIS
     Route: 042
     Dates: start: 20090112

REACTIONS (8)
  - Tinea pedis [Not Recovered/Not Resolved]
  - Fungal skin infection [Not Recovered/Not Resolved]
  - Cellulitis [Not Recovered/Not Resolved]
  - Toe amputation [Unknown]
  - Systemic lupus erythematosus [Not Recovered/Not Resolved]
  - Osteoporosis [Not Recovered/Not Resolved]
  - Lip injury [Unknown]
  - Fungal rhinitis [Unknown]
